FAERS Safety Report 7936137-X (Version None)
Quarter: 2011Q4

REPORT INFORMATION
  Report Type: 
  Country: None (occurrence: None)
  Receive Date: 20111123
  Receipt Date: 20111116
  Transmission Date: 20120403
  Serious: Yes (Other)
  Sender: FDA-Public Use
  Company Number: US-BRISTOL-MYERS SQUIBB COMPANY-16234361

PATIENT
  Sex: Male

DRUGS (1)
  1. KOMBIGLYZE XR [Suspect]

REACTIONS (1)
  - HYPERTENSIVE CRISIS [None]
